FAERS Safety Report 6933079-3 (Version None)
Quarter: 2010Q3

REPORT INFORMATION
  Report Type: 
  Country: None (occurrence: None)
  Receive Date: 20100819
  Receipt Date: 20100811
  Transmission Date: 20110219
  Serious: Yes (Other)
  Sender: FDA-Public Use
  Company Number: JP-ABBOTT-10P-087-0622474-00

PATIENT
  Sex: Female
  Weight: 52.5 kg

DRUGS (6)
  1. HUMIRA [Suspect]
     Indication: RHEUMATOID ARTHRITIS
     Route: 058
     Dates: start: 20090421, end: 20100115
  2. HUMIRA [Suspect]
     Dates: start: 20100318
  3. METHOTREXATE [Concomitant]
     Indication: RHEUMATOID ARTHRITIS
     Dosage: 4 PLUS 2MG/W
     Dates: end: 20091008
  4. METHOTREXATE [Concomitant]
     Dosage: 4MG/W
     Dates: start: 20091009, end: 20100114
  5. METHOTREXATE [Concomitant]
     Dosage: 4 PLUS 2MG/W
     Dates: start: 20100115
  6. FOLIC ACID [Concomitant]
     Indication: RHEUMATOID ARTHRITIS
     Route: 048

REACTIONS (2)
  - ENDOMETRIAL HYPERPLASIA [None]
  - ENDOMETRIOSIS [None]
